FAERS Safety Report 18756284 (Version 1)
Quarter: 2021Q1

REPORT INFORMATION
  Report Type: Spontaneous
  Country: NL (occurrence: NL)
  Receive Date: 20210119
  Receipt Date: 20210119
  Transmission Date: 20210419
  Serious: Yes (Other)
  Sender: FDA-Public Use
  Company Number: NL-MYLANLABS-2020M1083115

PATIENT
  Age: 51 Year
  Sex: Female
  Weight: 50 kg

DRUGS (7)
  1. CARBON DIOXIDE. [Concomitant]
     Active Substance: CARBON DIOXIDE
     Indication: PRODUCT USED FOR UNKNOWN INDICATION
     Dosage: IN THE AFTERNOON 1 H, IN EVENING 1.5 H
     Route: 065
  2. SALAZOPYRINE [Concomitant]
     Active Substance: SULFASALAZINE
     Indication: COLITIS ULCERATIVE
     Dosage: 2 DOSAGE FORM, BID
     Route: 048
     Dates: start: 1990
  3. FERROFUMARAAT [Concomitant]
     Active Substance: FERROUS FUMARATE
     Indication: MINERAL SUPPLEMENTATION
     Dosage: 2 DOSAGE FORM, QW
     Route: 048
  4. ACENOCOUMAROL [Concomitant]
     Active Substance: ACENOCOUMAROL
     Indication: ANTICOAGULANT THERAPY
     Dosage: UNK
     Route: 048
  5. METOPROLOL MYLAN 50 MG TABLETS [Suspect]
     Active Substance: METOPROLOL
     Indication: ARRHYTHMIA
     Dosage: 50 MILLIGRAM, BID (2X DAILY 1 TABLET)
     Route: 048
     Dates: start: 20190612, end: 20201101
  6. LEVOTHYROXINE SODIUM. [Concomitant]
     Active Substance: LEVOTHYROXINE SODIUM
     Indication: THYROID DISORDER
     Dosage: 1 DOSAGE FORM, QOD (IN MORNING)
     Route: 048
  7. OXYGEN. [Concomitant]
     Active Substance: OXYGEN
     Indication: PRODUCT USED FOR UNKNOWN INDICATION
     Dosage: IN AFTERNOON 1 H, IN EVENING 2 H
     Dates: start: 2008

REACTIONS (11)
  - General physical health deterioration [Recovered/Resolved]
  - Therapeutic response unexpected [Unknown]
  - Musculoskeletal stiffness [Not Recovered/Not Resolved]
  - Paraesthesia [Not Recovered/Not Resolved]
  - Muscle spasms [Not Recovered/Not Resolved]
  - Rhinorrhoea [Unknown]
  - Cardiac dysfunction [Unknown]
  - Migraine [Recovered/Resolved]
  - Product availability issue [Unknown]
  - Nasopharyngitis [Unknown]
  - Decreased activity [Unknown]
